FAERS Safety Report 5842192-3 (Version None)
Quarter: 2008Q3

REPORT INFORMATION
  Report Type: 
  Country: None (occurrence: None)
  Receive Date: 20080731
  Receipt Date: 20080609
  Transmission Date: 20090109
  Serious: No
  Sender: FDA-Public Use
  Company Number: US200805003348

PATIENT
  Age: 63 Year
  Sex: Female

DRUGS (7)
  1. BYETTA [Suspect]
     Indication: TYPE 1 DIABETES MELLITUS
     Dosage: 5 UG, 2/D, SUBCUTANEOUS
     Route: 058
     Dates: start: 20080511
  2. ACTOS /USA/ (PIOGLITAZONE HYDROCHLORIDE) [Concomitant]
  3. INSULIN, REGULAR (INSULIN) [Concomitant]
  4. HUMALOG [Concomitant]
  5. COZAAR [Concomitant]
  6. HYDRALAZINE HCL [Concomitant]
  7. CARDIAC THERAPY [Concomitant]

REACTIONS (11)
  - ABDOMINAL PAIN UPPER [None]
  - BLOOD GLUCOSE DECREASED [None]
  - BLOOD GLUCOSE INCREASED [None]
  - CONSTIPATION [None]
  - DIZZINESS [None]
  - HYPERHIDROSIS [None]
  - INJECTION SITE PAIN [None]
  - IRRITABILITY [None]
  - PALPITATIONS [None]
  - SOMNOLENCE [None]
  - VISUAL IMPAIRMENT [None]
